FAERS Safety Report 9859535 (Version 2)
Quarter: 2014Q2

REPORT INFORMATION
  Report Type: Spontaneous
  Country: US (occurrence: US)
  Receive Date: 20140131
  Receipt Date: 20140401
  Transmission Date: 20141212
  Serious: Yes (Other)
  Sender: FDA-Public Use
  Company Number: US-TEVA-459266USA

PATIENT
  Age: 20 Year
  Sex: Female
  Weight: 88.53 kg

DRUGS (2)
  1. PARAGARD 380A [Suspect]
     Indication: CONTRACEPTION
     Route: 015
     Dates: start: 20130731, end: 20140108
  2. PRENATAL VITAMINS [Concomitant]
     Route: 048
     Dates: start: 201401

REACTIONS (4)
  - Pregnancy with contraceptive device [Unknown]
  - Drug ineffective [Unknown]
  - Device dislocation [Recovered/Resolved]
  - Metrorrhagia [Unknown]
